FAERS Safety Report 13373614 (Version 3)
Quarter: 2017Q2

REPORT INFORMATION
  Report Type: Report from Study
  Country: US (occurrence: US)
  Receive Date: 20170327
  Receipt Date: 20170511
  Transmission Date: 20170830
  Serious: Yes (Other)
  Sender: FDA-Public Use
  Company Number: US-BIOGEN-2017BI00376460

PATIENT
  Sex: Female

DRUGS (2)
  1. TYSABRI [Suspect]
     Active Substance: NATALIZUMAB
     Indication: MULTIPLE SCLEROSIS
     Route: 065
     Dates: start: 20110916, end: 20151016
  2. TYSABRI [Suspect]
     Active Substance: NATALIZUMAB
     Route: 065
     Dates: start: 20160413, end: 20161229

REACTIONS (5)
  - Feeling abnormal [Recovered/Resolved]
  - Secretion discharge [Recovered/Resolved]
  - Adverse drug reaction [Unknown]
  - Haemoptysis [Unknown]
  - Drug intolerance [Recovered/Resolved]
